FAERS Safety Report 18263247 (Version 1)
Quarter: 2020Q3

REPORT INFORMATION
  Report Type: Spontaneous
  Country: US (occurrence: US)
  Receive Date: 20200914
  Receipt Date: 20200914
  Transmission Date: 20201103
  Serious: No
  Sender: FDA-Public Use
  Company Number: US-RECKITT BENCKISER HEALTHCARE INT LIMITED-RB-87408-2019

PATIENT
  Age: 49 Year
  Sex: Male

DRUGS (2)
  1. MUCINEX D [Suspect]
     Active Substance: GUAIFENESIN\PSEUDOEPHEDRINE HYDROCHLORIDE
     Indication: PRODUCT USED FOR UNKNOWN INDICATION
     Dosage: TOOK 2 DOSAGE FORM AT BID FREQUENCY
     Route: 065
     Dates: start: 20190627
  2. LEVAQUIN [Suspect]
     Active Substance: LEVOFLOXACIN
     Indication: RESPIRATORY TRACT INFECTION
     Dosage: TOOK 1 DOSAGE FORM AT QD FREQUENCY
     Route: 065
     Dates: start: 201906

REACTIONS (7)
  - Tachypnoea [Unknown]
  - Irritability [Unknown]
  - Restlessness [Unknown]
  - Upper-airway cough syndrome [Unknown]
  - Initial insomnia [Unknown]
  - Drug ineffective [Not Recovered/Not Resolved]
  - Anxiety [Unknown]

NARRATIVE: CASE EVENT DATE: 201906
